FAERS Safety Report 25341066 (Version 1)
Quarter: 2025Q2

REPORT INFORMATION
  Report Type: Spontaneous
  Country: US (occurrence: None)
  Receive Date: 20250520
  Receipt Date: 20250520
  Transmission Date: 20250717
  Serious: Yes (Hospitalization)
  Sender: FDA-CTU
  Company Number: None

PATIENT
  Age: 51 Year
  Sex: Female

DRUGS (12)
  1. HUMIRA [Suspect]
     Active Substance: ADALIMUMAB
     Indication: Behcet^s syndrome
     Route: 058
     Dates: start: 202502, end: 202503
  2. AMITRIPTYLINE [Concomitant]
     Active Substance: AMITRIPTYLINE
  3. AMLODIPINE [Concomitant]
     Active Substance: AMLODIPINE BESYLATE
  4. BUPROPION [Concomitant]
     Active Substance: BUPROPION
  5. CARISOPRODOL [Concomitant]
     Active Substance: CARISOPRODOL
  6. CYCLOSPORINE [Concomitant]
     Active Substance: CYCLOSPORINE
  7. DIAZEPAM [Concomitant]
     Active Substance: DIAZEPAM
  8. DIAZEPAM [Concomitant]
     Active Substance: DIAZEPAM
  9. ESTRADIOL [Concomitant]
     Active Substance: ESTRADIOL
  10. HYDROCODONE BITARTRATE AND ACETAMINOPHEN [Concomitant]
     Active Substance: ACETAMINOPHEN\HYDROCODONE BITARTRATE
  11. LIDOCAINE [Concomitant]
     Active Substance: LIDOCAINE
  12. LINZESS [Concomitant]
     Active Substance: LINACLOTIDE

REACTIONS (2)
  - Localised infection [None]
  - Therapy cessation [None]

NARRATIVE: CASE EVENT DATE: 20250301
